FAERS Safety Report 7524748-5 (Version None)
Quarter: 2011Q2

REPORT INFORMATION
  Report Type: 
  Country: None (occurrence: None)
  Receive Date: 20110606
  Receipt Date: 20110131
  Transmission Date: 20111010
  Serious: Yes (Other)
  Sender: FDA-Public Use
  Company Number: US-BAYER-200935707NA

PATIENT
  Age: 44 Year
  Sex: Female
  Weight: 77.098 kg

DRUGS (7)
  1. ADVAIR DISKUS 100/50 [Concomitant]
  2. LIPITOR [Concomitant]
  3. LUNESTA [Concomitant]
  4. YASMIN [Suspect]
     Indication: PRODUCT USED FOR UNKNOWN INDICATION
  5. YAZ [Suspect]
     Indication: PRODUCT USED FOR UNKNOWN INDICATION
     Route: 048
     Dates: start: 20071201, end: 20080901
  6. TUSSIONEX [HYDROCODONE,PHENYLTOLOXAMINE] [Concomitant]
  7. TAMIFLU [Concomitant]

REACTIONS (1)
  - DEEP VEIN THROMBOSIS [None]
